FAERS Safety Report 18324183 (Version 1)
Quarter: 2020Q3

REPORT INFORMATION
  Report Type: Report from Study
  Country: GB (occurrence: GB)
  Receive Date: 20200928
  Receipt Date: 20200928
  Transmission Date: 20201103
  Serious: Yes (Life-Threatening, Other)
  Sender: FDA-Public Use
  Company Number: GB-GILEAD-2020-0480958

PATIENT
  Sex: Male

DRUGS (6)
  1. SOFOSBUVIR W/VELPATASVIR/VOXILAPREVIR [Suspect]
     Active Substance: SOFOSBUVIR\VELPATASVIR\VOXILAPREVIR
     Indication: HEPATITIS C
     Dosage: 1 DOSAGE FORM, QD
     Route: 048
     Dates: start: 20190124, end: 20190416
  2. SERTRALINE [Concomitant]
     Active Substance: SERTRALINE HYDROCHLORIDE
     Indication: DEPRESSION
     Dosage: 50 MG
     Route: 048
  3. SIROLIMUS. [Concomitant]
     Active Substance: SIROLIMUS
     Dosage: 2MG/1MG QOD
     Route: 048
     Dates: start: 20171013
  4. SALBUTAMOL [SALBUTAMOL SULFATE] [Concomitant]
     Active Substance: ALBUTEROL SULFATE
     Indication: DYSPNOEA
     Dosage: 100 MCG PER PUFF
     Route: 055
  5. OMEPRAZOLE. [Concomitant]
     Active Substance: OMEPRAZOLE
     Indication: PROPHYLAXIS
     Dosage: 20 MG
     Route: 048
     Dates: start: 20130503
  6. ASPIRIN [ACETYLSALICYLIC ACID] [Concomitant]
     Active Substance: ASPIRIN
     Dosage: 75 MG, QD
     Route: 048
     Dates: start: 20161021

REACTIONS (3)
  - Drug ineffective [Unknown]
  - Genotype drug resistance test positive [Unknown]
  - Hepatitis C [Not Recovered/Not Resolved]

NARRATIVE: CASE EVENT DATE: 2019
